FAERS Safety Report 9031005 (Version 1)
Quarter: 2013Q1

REPORT INFORMATION
  Report Type: Spontaneous
  Country: RU (occurrence: RU)
  Receive Date: 20130123
  Receipt Date: 20130123
  Transmission Date: 20140127
  Serious: Yes (Death)
  Sender: FDA-Public Use
  Company Number: PHHY2013RU006074

PATIENT
  Age: 18 Year
  Sex: Male

DRUGS (4)
  1. AMOKSIKLAV [Suspect]
     Indication: RESPIRATORY DISORDER
     Dosage: 625 MG, QD
     Route: 048
     Dates: start: 20121130
  2. ARBIDOL [Concomitant]
     Route: 048
     Dates: start: 20121130
  3. ANALGIN [Concomitant]
     Route: 048
     Dates: start: 20121127
  4. SEPTOLETE [Concomitant]
     Route: 048

REACTIONS (1)
  - Death [Fatal]
